FAERS Safety Report 24523977 (Version 1)
Quarter: 2024Q4

REPORT INFORMATION
  Report Type: Spontaneous
  Country: US (occurrence: US)
  Receive Date: 20241018
  Receipt Date: 20241018
  Transmission Date: 20250114
  Serious: No
  Sender: SANOFI AVENTIS
  Company Number: US-SANOFI-02247960

PATIENT
  Sex: Female

DRUGS (1)
  1. DUPIXENT [Suspect]
     Active Substance: DUPILUMAB
     Indication: Asthma
     Dosage: UNK
     Route: 058
     Dates: start: 20240920

REACTIONS (8)
  - Chest discomfort [Unknown]
  - Dyspnoea [Unknown]
  - Sputum retention [Unknown]
  - Headache [Unknown]
  - Fatigue [Unknown]
  - Asthenia [Unknown]
  - Urticaria [Unknown]
  - Rash [Unknown]

NARRATIVE: CASE EVENT DATE: 20241001
